FAERS Safety Report 10369754 (Version 2)
Quarter: 2014Q3

REPORT INFORMATION
  Report Type: Spontaneous
  Country: JP (occurrence: JP)
  Receive Date: 20140807
  Receipt Date: 20140807
  Transmission Date: 20150326
  Serious: Yes (Hospitalization)
  Sender: FDA-Public Use
  Company Number: JP-ROCHE-1404422

PATIENT
  Age: 48 Year
  Sex: Female
  Weight: 79 kg

DRUGS (10)
  1. BAYASPIRIN [Suspect]
     Active Substance: ASPIRIN
     Indication: THROMBOSIS PROPHYLAXIS
     Dosage: LAST DOSE PRIOR TO SERIOUS ADVERSE EVENT: 12/APR/2014
     Route: 048
     Dates: start: 20131212
  2. DEXART [Concomitant]
     Active Substance: DEXAMETHASONE SODIUM PHOSPHATE
     Route: 042
     Dates: start: 20140108, end: 20140412
  3. RANITIDINE [Concomitant]
     Active Substance: RANITIDINE\RANITIDINE HYDROCHLORIDE
     Route: 042
     Dates: start: 20140108, end: 20140412
  4. VENA [Concomitant]
     Active Substance: DIPHENHYDRAMINE HYDROCHLORIDE
     Route: 048
     Dates: start: 20140108, end: 20140412
  5. CODEINE [Concomitant]
     Active Substance: CODEINE
     Indication: COUGH
     Route: 048
     Dates: start: 20131129, end: 20140604
  6. AVASTIN [Suspect]
     Active Substance: BEVACIZUMAB
     Indication: BREAST CANCER METASTATIC
     Dosage: LAST DOSE PRIOR TO SERIOUS ADVERSE EVENT: 02/APR/2014
     Route: 041
     Dates: start: 20140108
  7. HYSRON H [Concomitant]
     Indication: BREAST CANCER METASTATIC
     Route: 048
     Dates: start: 20131212, end: 20140412
  8. TAXOL [Concomitant]
     Active Substance: PACLITAXEL
     Indication: BREAST CANCER METASTATIC
     Route: 041
     Dates: start: 20140108, end: 20140409
  9. ALLELOCK [Concomitant]
     Active Substance: OLOPATADINE HYDROCHLORIDE
     Indication: SEASONAL ALLERGY
     Route: 048
     Dates: start: 20140219, end: 20140604
  10. LENDORMIN [Concomitant]
     Active Substance: BROTIZOLAM
     Indication: INSOMNIA
     Route: 048
     Dates: start: 20131212, end: 20140604

REACTIONS (3)
  - Anaemia [Recovered/Resolved]
  - Shock [Recovered/Resolved]
  - Epistaxis [Recovered/Resolved]

NARRATIVE: CASE EVENT DATE: 20140412
